FAERS Safety Report 8063779-6 (Version None)
Quarter: 2012Q1

REPORT INFORMATION
  Report Type: 
  Country: None (occurrence: None)
  Receive Date: 20120123
  Receipt Date: 20120112
  Transmission Date: 20120608
  Serious: Yes (Hospitalization, Disabling, Other)
  Sender: FDA-Public Use
  Company Number: US-MERCK-1106USA01029

PATIENT
  Age: 69 Year
  Sex: Female
  Weight: 68 kg

DRUGS (7)
  1. FOSAMAX PLUS D [Suspect]
     Route: 048
     Dates: start: 20060124
  2. CALCIUM (UNSPECIFIED) [Concomitant]
     Route: 065
     Dates: start: 19800101
  3. VITAMIN D (UNSPECIFIED) [Concomitant]
     Route: 065
     Dates: start: 19800101
  4. FOSAMAX [Suspect]
     Indication: OSTEOPOROSIS
     Route: 048
     Dates: start: 20020424, end: 20061101
  5. MAGNESIUM CITRATE [Concomitant]
     Route: 065
     Dates: start: 19800101
  6. FOSAMAX PLUS D [Suspect]
     Indication: OSTEOPOROSIS
     Route: 048
     Dates: start: 20061201, end: 20070501
  7. VITAMINS (UNSPECIFIED) [Concomitant]
     Route: 065
     Dates: start: 19800101

REACTIONS (29)
  - THROMBOSIS IN DEVICE [None]
  - STEROID THERAPY [None]
  - AORTIC VALVE INCOMPETENCE [None]
  - GASTROOESOPHAGEAL REFLUX DISEASE [None]
  - HYPERLIPIDAEMIA [None]
  - CARDIAC MURMUR [None]
  - OSTEOPOROSIS [None]
  - ULCER [None]
  - BURSITIS [None]
  - TRICUSPID VALVE INCOMPETENCE [None]
  - PERIPHERAL ARTERIAL OCCLUSIVE DISEASE [None]
  - EAR PAIN [None]
  - STRESS FRACTURE [None]
  - HYPONATRAEMIA [None]
  - LACERATION [None]
  - OVERDOSE [None]
  - ATRIAL FIBRILLATION [None]
  - FEMUR FRACTURE [None]
  - CARDIOVASCULAR DISORDER [None]
  - GALLBLADDER DISORDER [None]
  - PULMONARY VALVE INCOMPETENCE [None]
  - LOW TURNOVER OSTEOPATHY [None]
  - DEPRESSION [None]
  - ANXIETY [None]
  - CORONARY ARTERY DISEASE [None]
  - MITRAL VALVE INCOMPETENCE [None]
  - MACULAR DEGENERATION [None]
  - HYPERTHYROIDISM [None]
  - ARTHRITIS [None]
